FAERS Safety Report 17314491 (Version 1)
Quarter: 2020Q1

REPORT INFORMATION
  Report Type: Spontaneous
  Country: US (occurrence: US)
  Receive Date: 20200124
  Receipt Date: 20200124
  Transmission Date: 20200409
  Serious: Yes (Hospitalization, Other)
  Sender: FDA-Public Use
  Company Number: US-ACCORD-170505

PATIENT
  Age: 63 Year
  Sex: Male

DRUGS (3)
  1. ETOPOSIDE. [Suspect]
     Active Substance: ETOPOSIDE
     Indication: SEMINOMA
  2. BLEOMYCIN [Concomitant]
     Active Substance: BLEOMYCIN SULFATE
     Indication: SEMINOMA
  3. CISPLATIN. [Concomitant]
     Active Substance: CISPLATIN
     Indication: SEMINOMA

REACTIONS (2)
  - Salmonellosis [Unknown]
  - Febrile neutropenia [Unknown]
